FAERS Safety Report 4353409-9 (Version None)
Quarter: 2004Q2

REPORT INFORMATION
  Report Type: 
  Country: None (occurrence: None)
  Receive Date: 20040504
  Receipt Date: 20040420
  Transmission Date: 20050107
  Serious: Yes (Death)
  Sender: FDA-Public Use
  Company Number: 2004S1001154

PATIENT
  Age: 46 Year
  Sex: Female

DRUGS (6)
  1. CLOZAPINE [Suspect]
     Indication: SCHIZOPHRENIA
     Dosage: 50 MG Q HS, ORAL
     Route: 048
     Dates: start: 20040216
  2. CLOZAPINE [Suspect]
     Indication: SCHIZOPHRENIA
     Dosage: 100 MG Q 7PM + Q HS, ORAL
     Route: 048
     Dates: start: 20040216
  3. RISPERIDONE [Concomitant]
  4. DIVALPROEX SODIUM [Concomitant]
  5. PROCYCLIIDINE [Concomitant]
  6. DESMOPRESSIN [Concomitant]

REACTIONS (1)
  - ACCIDENTAL OVERDOSE [None]
